FAERS Safety Report 7719703-6 (Version None)
Quarter: 2011Q3

REPORT INFORMATION
  Report Type: 
  Country: None (occurrence: None)
  Receive Date: 20110830
  Receipt Date: 20090626
  Transmission Date: 20111222
  Serious: Yes (Hospitalization, Other)
  Sender: FDA-Public Use
  Company Number: PHHY2011TW03129

PATIENT
  Sex: Female

DRUGS (1)
  1. GLEEVEC [Suspect]
     Indication: GASTROINTESTINAL STROMAL TUMOUR
     Dosage: 200 MG
     Route: 048
     Dates: start: 20070914

REACTIONS (5)
  - GAIT DISTURBANCE [None]
  - MUSCULAR WEAKNESS [None]
  - ARTHRALGIA [None]
  - BONE ATROPHY [None]
  - POOR QUALITY SLEEP [None]
